FAERS Safety Report 4934772-4 (Version None)
Quarter: 2006Q1

REPORT INFORMATION
  Report Type: 
  Country: None (occurrence: None)
  Receive Date: 20060307
  Receipt Date: 20051104
  Transmission Date: 20060701
  Serious: Yes (Hospitalization, Other)
  Sender: FDA-Public Use
  Company Number: US-MERCK-0511USA01187

PATIENT
  Age: 78 Year
  Sex: Female
  Weight: 73 kg

DRUGS (17)
  1. VIOXX [Suspect]
     Route: 048
     Dates: start: 20010901, end: 20040907
  2. ZESTRIL [Concomitant]
     Indication: HYPERTENSION
     Route: 065
     Dates: start: 20000101, end: 20041001
  3. SOTALOL HYDROCHLORIDE [Concomitant]
     Indication: HYPERTENSION
     Route: 065
     Dates: start: 20000101, end: 20041001
  4. NITROFURANTOIN [Concomitant]
     Indication: HYPERTENSION
     Route: 065
     Dates: start: 20001001, end: 20001001
  5. LANOXIN [Concomitant]
     Route: 065
     Dates: start: 20000501, end: 20041001
  6. PROPOXYPHENE NAPSYLATE [Concomitant]
     Indication: PAIN
     Route: 065
     Dates: start: 20000201, end: 20031201
  7. IBUPROFEN [Concomitant]
     Indication: PAIN
     Route: 065
     Dates: start: 20001101, end: 20020301
  8. METHOCARBAMOL [Concomitant]
     Indication: PAIN
     Route: 065
     Dates: start: 20001101, end: 20010901
  9. LORAZEPAM [Concomitant]
     Indication: ANXIETY
     Route: 065
  10. CELEXA [Concomitant]
     Indication: DEPRESSION
     Route: 065
  11. EXELON [Concomitant]
     Indication: DEMENTIA ALZHEIMER'S TYPE
     Route: 065
  12. DETROL [Concomitant]
     Indication: URINARY INCONTINENCE
     Route: 065
  13. ZYPREXA [Concomitant]
     Indication: BIPOLAR DISORDER
     Route: 065
  14. PREVACID [Concomitant]
     Indication: ULCER
     Route: 065
  15. CIPRO [Concomitant]
     Indication: BACTERIAL INFECTION
     Route: 065
  16. GUAIFENESIN [Concomitant]
     Indication: BRONCHITIS
     Route: 065
  17. SEROQUEL [Concomitant]
     Indication: BIPOLAR DISORDER
     Route: 065

REACTIONS (11)
  - BLOOD CHOLESTEROL INCREASED [None]
  - CARDIAC DISORDER [None]
  - CEREBROVASCULAR ACCIDENT [None]
  - DEHYDRATION [None]
  - HAEMORRHAGE [None]
  - HEADACHE [None]
  - HYPOVITAMINOSIS [None]
  - INTERVERTEBRAL DISC PROTRUSION [None]
  - MUSCULOSKELETAL CHEST PAIN [None]
  - PHARYNGITIS [None]
  - SINUSITIS [None]
